FAERS Safety Report 13348806 (Version 15)
Quarter: 2019Q1

REPORT INFORMATION
  Report Type: Spontaneous
  Country: US (occurrence: US)
  Receive Date: 20170320
  Receipt Date: 20190122
  Transmission Date: 20190417
  Serious: Yes (Other)
  Sender: FDA-Public Use
  Company Number: ALCN2017US001983

PATIENT
  Age: 51 Year
  Sex: Female

DRUGS (7)
  1. ATORVASTATIN [Concomitant]
     Active Substance: ATORVASTATIN
     Dosage: 1 DF, UNK
     Route: 048
     Dates: start: 20170414
  2. HOMATROPINE HYDROBROMIDE. [Suspect]
     Active Substance: HOMATROPINE HYDROBROMIDE
     Indication: PRODUCT USED FOR UNKNOWN INDICATION
     Dosage: UNK
     Route: 047
     Dates: start: 20170213
  3. NAPROXEN. [Concomitant]
     Active Substance: NAPROXEN
     Dosage: 1 DF, UNK
     Route: 048
     Dates: start: 20170518
  4. VIGAMOX [Suspect]
     Active Substance: MOXIFLOXACIN HYDROCHLORIDE
     Indication: EYE INFECTION
     Dosage: 1 GTT, QH
     Route: 047
     Dates: start: 20170213, end: 20170313
  5. NAPROXEN. [Concomitant]
     Active Substance: NAPROXEN
     Dosage: 1 DF, UNK
     Route: 048
     Dates: start: 20170414
  6. NAPROXEN. [Concomitant]
     Active Substance: NAPROXEN
     Indication: PRODUCT USED FOR UNKNOWN INDICATION
     Dosage: 1 DF, UNK
     Route: 048
     Dates: start: 20170222
  7. ATORVASTATIN [Concomitant]
     Active Substance: ATORVASTATIN
     Indication: PRODUCT USED FOR UNKNOWN INDICATION
     Dosage: 1 DF, UNK
     Route: 048
     Dates: start: 20170222

REACTIONS (21)
  - Product residue present [Not Recovered/Not Resolved]
  - Superficial injury of eye [Unknown]
  - Cataract nuclear [Unknown]
  - Hordeolum [Not Recovered/Not Resolved]
  - Corneal opacity [Not Recovered/Not Resolved]
  - Deep anterior chamber of the eye [Unknown]
  - Eye pain [Unknown]
  - Mydriasis [Not Recovered/Not Resolved]
  - Eye irritation [Not Recovered/Not Resolved]
  - Eye discharge [Unknown]
  - Corneal scar [Unknown]
  - Visual impairment [Unknown]
  - Pinguecula [Unknown]
  - Skin discolouration [Unknown]
  - Ulcerative keratitis [Not Recovered/Not Resolved]
  - Blister [Not Recovered/Not Resolved]
  - Eye swelling [Unknown]
  - Dry eye [Not Recovered/Not Resolved]
  - Corneal epithelial microcysts [Not Recovered/Not Resolved]
  - Vision blurred [Unknown]
  - Eye colour change [Unknown]

NARRATIVE: CASE EVENT DATE: 201702
